FAERS Safety Report 11337335 (Version 1)
Quarter: 2015Q3

REPORT INFORMATION
  Report Type: Spontaneous
  Country: US (occurrence: US)
  Receive Date: 20150803
  Receipt Date: 20150803
  Transmission Date: 20151125
  Serious: No
  Sender: FDA-Public Use
  Company Number: US-ELI_LILLY_AND_COMPANY-US200802004479

PATIENT
  Age: 40 Year
  Sex: Male
  Weight: 133.79 kg

DRUGS (6)
  1. BUPROPION. [Concomitant]
     Active Substance: BUPROPION
     Dates: start: 19980228, end: 20000325
  2. HALOPERIDOL. [Concomitant]
     Active Substance: HALOPERIDOL
     Dates: start: 19950707, end: 19961016
  3. ZYPREXA [Suspect]
     Active Substance: OLANZAPINE
     Indication: DEPRESSION
     Dosage: 10 MG, UNK
     Dates: start: 19960210, end: 20000325
  4. SERTRALINE [Concomitant]
     Active Substance: SERTRALINE HYDROCHLORIDE
     Dates: start: 19950208, end: 19980221
  5. RISPERIDONE. [Concomitant]
     Active Substance: RISPERIDONE
     Dates: start: 19960916, end: 19970102
  6. LITHIUM. [Concomitant]
     Active Substance: LITHIUM
     Dates: start: 19950508, end: 20000325

REACTIONS (3)
  - Diabetes mellitus [Not Recovered/Not Resolved]
  - Overweight [Not Recovered/Not Resolved]
  - Fatigue [Not Recovered/Not Resolved]

NARRATIVE: CASE EVENT DATE: 199801
